FAERS Safety Report 4711803-8 (Version None)
Quarter: 2005Q2

REPORT INFORMATION
  Report Type: 
  Country: None (occurrence: None)
  Receive Date: 20050629
  Receipt Date: 20050531
  Transmission Date: 20051028
  Serious: No
  Sender: FDA-Public Use
  Company Number: 05P-163-0301862-00

PATIENT
  Age: 56 Year
  Sex: Male
  Weight: 48.9885 kg

DRUGS (17)
  1. HUMIRA [Suspect]
     Indication: RHEUMATOID ARTHRITIS
     Dosage: 40 MG, 1 IN 10 D, SUBCUTANEOUS
     Route: 058
     Dates: start: 20030401
  2. CLOPIDOGREL BISULFATE [Concomitant]
  3. QUINAPRIL [Concomitant]
  4. ATENOLOL [Concomitant]
  5. GLIPIZIDE [Concomitant]
  6. METHOTREXATE [Concomitant]
  7. ADVICOR [Concomitant]
  8. ZETIA [Concomitant]
  9. ROSIGLITAZONE MALEATE [Concomitant]
  10. FLUOXETINE [Concomitant]
  11. TRAMADOL HCL [Concomitant]
  12. CYCLOBENZAPRINE HYDROCHLORIDE [Concomitant]
  13. ASPIRIN [Concomitant]
  14. MULTIVITAMIN [Concomitant]
  15. CALCIUM GLUCONATE [Concomitant]
  16. MAGNESIUM [Concomitant]
  17. GLYCERYL TRINITRATE [Concomitant]

REACTIONS (1)
  - DIVERTICULITIS [None]
